FAERS Safety Report 25872652 (Version 1)
Quarter: 2025Q4

REPORT INFORMATION
  Report Type: Spontaneous
  Country: JP (occurrence: JP)
  Receive Date: 20251002
  Receipt Date: 20251002
  Transmission Date: 20260118
  Serious: Yes (Hospitalization)
  Sender: MYLAN
  Company Number: JP-MYLANLABS-2025M1082964

PATIENT
  Age: 3 Decade
  Sex: Female

DRUGS (44)
  1. MYCOPHENOLATE MOFETIL [Suspect]
     Active Substance: MYCOPHENOLATE MOFETIL
     Indication: Prophylaxis against graft versus host disease
  2. MYCOPHENOLATE MOFETIL [Suspect]
     Active Substance: MYCOPHENOLATE MOFETIL
     Route: 065
  3. MYCOPHENOLATE MOFETIL [Suspect]
     Active Substance: MYCOPHENOLATE MOFETIL
     Route: 065
  4. MYCOPHENOLATE MOFETIL [Suspect]
     Active Substance: MYCOPHENOLATE MOFETIL
  5. CYCLOPHOSPHAMIDE [Suspect]
     Active Substance: CYCLOPHOSPHAMIDE
     Indication: Prophylaxis against graft versus host disease
  6. CYCLOPHOSPHAMIDE [Suspect]
     Active Substance: CYCLOPHOSPHAMIDE
     Route: 065
  7. CYCLOPHOSPHAMIDE [Suspect]
     Active Substance: CYCLOPHOSPHAMIDE
     Route: 065
  8. CYCLOPHOSPHAMIDE [Suspect]
     Active Substance: CYCLOPHOSPHAMIDE
  9. TACROLIMUS [Suspect]
     Active Substance: TACROLIMUS
     Indication: Prophylaxis against graft versus host disease
  10. TACROLIMUS [Suspect]
     Active Substance: TACROLIMUS
     Route: 065
  11. TACROLIMUS [Suspect]
     Active Substance: TACROLIMUS
     Route: 065
  12. TACROLIMUS [Suspect]
     Active Substance: TACROLIMUS
  13. DEXAMETHASONE [Concomitant]
     Active Substance: DEXAMETHASONE
     Indication: Angiocentric lymphoma
     Dosage: SMILE CHEMOTHERAPY
  14. DEXAMETHASONE [Concomitant]
     Active Substance: DEXAMETHASONE
     Dosage: SMILE CHEMOTHERAPY
     Route: 065
  15. DEXAMETHASONE [Concomitant]
     Active Substance: DEXAMETHASONE
     Dosage: SMILE CHEMOTHERAPY
     Route: 065
  16. DEXAMETHASONE [Concomitant]
     Active Substance: DEXAMETHASONE
     Dosage: SMILE CHEMOTHERAPY
  17. METHOTREXATE [Concomitant]
     Active Substance: METHOTREXATE
     Indication: Angiocentric lymphoma
     Dosage: SMILE CHEMOTHERAPY
  18. METHOTREXATE [Concomitant]
     Active Substance: METHOTREXATE
     Dosage: SMILE CHEMOTHERAPY
     Route: 065
  19. METHOTREXATE [Concomitant]
     Active Substance: METHOTREXATE
     Dosage: SMILE CHEMOTHERAPY
     Route: 065
  20. METHOTREXATE [Concomitant]
     Active Substance: METHOTREXATE
     Dosage: SMILE CHEMOTHERAPY
  21. IFOSFAMIDE [Concomitant]
     Active Substance: IFOSFAMIDE
     Indication: Angiocentric lymphoma
     Dosage: SMILE CHEMOTHERAPY
  22. IFOSFAMIDE [Concomitant]
     Active Substance: IFOSFAMIDE
     Dosage: SMILE CHEMOTHERAPY
     Route: 065
  23. IFOSFAMIDE [Concomitant]
     Active Substance: IFOSFAMIDE
     Dosage: SMILE CHEMOTHERAPY
     Route: 065
  24. IFOSFAMIDE [Concomitant]
     Active Substance: IFOSFAMIDE
     Dosage: SMILE CHEMOTHERAPY
  25. ASPARAGINASE [Concomitant]
     Active Substance: ASPARAGINASE
     Indication: Angiocentric lymphoma
     Dosage: SMILE CHEMOTHERAPY
  26. ASPARAGINASE [Concomitant]
     Active Substance: ASPARAGINASE
     Dosage: SMILE CHEMOTHERAPY
     Route: 065
  27. ASPARAGINASE [Concomitant]
     Active Substance: ASPARAGINASE
     Dosage: SMILE CHEMOTHERAPY
     Route: 065
  28. ASPARAGINASE [Concomitant]
     Active Substance: ASPARAGINASE
     Dosage: SMILE CHEMOTHERAPY
  29. ETOPOSIDE [Concomitant]
     Active Substance: ETOPOSIDE
     Indication: Angiocentric lymphoma
     Dosage: SMILE CHEMOTHERAPY
  30. ETOPOSIDE [Concomitant]
     Active Substance: ETOPOSIDE
     Dosage: SMILE CHEMOTHERAPY
     Route: 065
  31. ETOPOSIDE [Concomitant]
     Active Substance: ETOPOSIDE
     Dosage: SMILE CHEMOTHERAPY
     Route: 065
  32. ETOPOSIDE [Concomitant]
     Active Substance: ETOPOSIDE
     Dosage: SMILE CHEMOTHERAPY
  33. FLUDARABINE [Concomitant]
     Active Substance: FLUDARABINE PHOSPHATE
     Indication: Bone marrow conditioning regimen
  34. FLUDARABINE [Concomitant]
     Active Substance: FLUDARABINE PHOSPHATE
     Route: 065
  35. FLUDARABINE [Concomitant]
     Active Substance: FLUDARABINE PHOSPHATE
     Route: 065
  36. FLUDARABINE [Concomitant]
     Active Substance: FLUDARABINE PHOSPHATE
  37. MELPHALAN [Concomitant]
     Active Substance: MELPHALAN
     Indication: Bone marrow conditioning regimen
  38. MELPHALAN [Concomitant]
     Active Substance: MELPHALAN
     Route: 065
  39. MELPHALAN [Concomitant]
     Active Substance: MELPHALAN
     Route: 065
  40. MELPHALAN [Concomitant]
     Active Substance: MELPHALAN
  41. AMPHOTERICIN B [Concomitant]
     Active Substance: AMPHOTERICIN B
     Indication: Evidence based treatment
  42. AMPHOTERICIN B [Concomitant]
     Active Substance: AMPHOTERICIN B
     Route: 065
  43. AMPHOTERICIN B [Concomitant]
     Active Substance: AMPHOTERICIN B
     Route: 065
  44. AMPHOTERICIN B [Concomitant]
     Active Substance: AMPHOTERICIN B

REACTIONS (1)
  - Drug ineffective [Unknown]
